FAERS Safety Report 13444922 (Version 1)
Quarter: 2017Q2

REPORT INFORMATION
  Report Type: Spontaneous
  Country: US (occurrence: US)
  Receive Date: 20170414
  Receipt Date: 20170414
  Transmission Date: 20170830
  Serious: Yes (Life-Threatening, Hospitalization, Other)
  Sender: FDA-Public Use
  Company Number: US-JNJFOC-20170403154

PATIENT
  Age: 18 Month
  Sex: Male
  Weight: 9.98 kg

DRUGS (1)
  1. BENADRYL [Suspect]
     Active Substance: DIPHENHYDRAMINE HYDROCHLORIDE
     Indication: PRODUCT USED FOR UNKNOWN INDICATION
     Dosage: THREE TO FIVE CAPSULES
     Route: 065

REACTIONS (11)
  - Accidental exposure to product by child [Recovering/Resolving]
  - Unresponsive to stimuli [Recovering/Resolving]
  - Protrusion tongue [Recovering/Resolving]
  - Dyskinesia [Recovering/Resolving]
  - Erythema [Recovering/Resolving]
  - Mydriasis [Recovering/Resolving]
  - Coma [Recovering/Resolving]
  - Seizure [Recovering/Resolving]
  - Exophthalmos [Recovering/Resolving]
  - Cyanosis [Recovering/Resolving]
  - Nystagmus [Recovering/Resolving]
